FAERS Safety Report 6200295-8 (Version None)
Quarter: 2009Q2

REPORT INFORMATION
  Report Type: 
  Country: None (occurrence: None)
  Receive Date: 20090522
  Receipt Date: 20090520
  Transmission Date: 20091009
  Serious: Yes (Death, Life-Threatening)
  Sender: FDA-Public Use
  Company Number: JP-JNJFOC-20090304374

PATIENT
  Age: 69 Year
  Sex: Male

DRUGS (5)
  1. DUROTEP [Suspect]
     Route: 062
  2. DUROTEP [Suspect]
     Route: 062
  3. DUROTEP [Suspect]
     Indication: CANCER PAIN
     Route: 062
  4. ANPEC (MORPHINE HYDROCHLORIDE) [Suspect]
     Route: 054
  5. ANPEC (MORPHINE HYDROCHLORIDE) [Suspect]
     Indication: DRUG USE FOR UNKNOWN INDICATION
     Route: 054

REACTIONS (3)
  - GASTRIC CANCER [None]
  - MALIGNANT ASCITES [None]
  - RESPIRATORY DEPRESSION [None]
